FAERS Safety Report 11664704 (Version 1)
Quarter: 2015Q4

REPORT INFORMATION
  Report Type: Spontaneous
  Country: US (occurrence: US)
  Receive Date: 20151027
  Receipt Date: 20151027
  Transmission Date: 20160304
  Serious: No
  Sender: FDA-Public Use
  Company Number: US-ELI_LILLY_AND_COMPANY-US200912000798

PATIENT
  Sex: Female

DRUGS (2)
  1. CALCIUM W/VITAMIN D /00188401/ [Concomitant]
     Dosage: 1200 MG, 2/D
  2. FORTEO [Suspect]
     Active Substance: TERIPARATIDE
     Indication: OSTEOPOROSIS

REACTIONS (1)
  - Nephrolithiasis [Unknown]
